FAERS Safety Report 5547543-5 (Version None)
Quarter: 2007Q4

REPORT INFORMATION
  Report Type: 
  Country: None (occurrence: None)
  Receive Date: 20071211
  Receipt Date: 20070226
  Transmission Date: 20080405
  Serious: No
  Sender: FDA-Public Use
  Company Number: US-AMGEN-KDL207360

PATIENT
  Sex: Female
  Weight: 54.9 kg

DRUGS (2)
  1. ENBREL [Suspect]
     Indication: RHEUMATOID ARTHRITIS
     Route: 058
     Dates: start: 20061215
  2. ARAVA [Concomitant]
     Dates: start: 20061215

REACTIONS (7)
  - ECZEMA [None]
  - ERYTHEMA [None]
  - FEELING HOT [None]
  - INDURATION [None]
  - INJECTION SITE REACTION [None]
  - PRURITUS [None]
  - SWELLING [None]
